FAERS Safety Report 21356402 (Version 1)
Quarter: 2022Q3

REPORT INFORMATION
  Report Type: Spontaneous
  Country: US (occurrence: US)
  Receive Date: 20220920
  Receipt Date: 20220920
  Transmission Date: 20221027
  Serious: Yes (Death, Life-Threatening, Hospitalization, Other)
  Sender: FDA-Public Use
  Company Number: US-GLAXOSMITHKLINE-US2022GSK126444

PATIENT
  Age: 8 Month
  Sex: Male

DRUGS (18)
  1. MORPHINE SULFATE [Interacting]
     Active Substance: MORPHINE SULFATE
     Dosage: WEANED DOWN SLOWLY WHILE TRANSITIONING TO ENTERAL METHADONE
     Route: 065
  2. MORPHINE SULFATE [Interacting]
     Active Substance: MORPHINE SULFATE
     Dosage: INCLUDED TEN 60 MCG/KG/DOSES OF INTRAVENOUS MORPHINE BOLUSES, A CONTINUOUS MORPHINE INFUSING AT 60 M
     Route: 065
  3. MORPHINE SULFATE [Interacting]
     Active Substance: MORPHINE SULFATE
     Dosage: CONTINUOUS
     Route: 065
  4. MORPHINE SULFATE [Interacting]
     Active Substance: MORPHINE SULFATE
     Dosage: 50 MCG/KG, Q1H
     Route: 065
  5. METHADONE [Interacting]
     Active Substance: METHADONE HYDROCHLORIDE
     Indication: Agitation
     Dosage: 4 DOSES OF 1.5 MG OF ENTERAL METHADONE
  6. METHADONE [Interacting]
     Active Substance: METHADONE HYDROCHLORIDE
     Indication: Pain
     Dosage: 0.75 MILLIGRAM/KILOGRAM, DAILY
  7. LINEZOLID [Interacting]
     Active Substance: LINEZOLID
     Indication: Product used for unknown indication
     Dosage: TOTAL RECEIVED 3 DOSES
  8. BOSENTAN [Concomitant]
     Active Substance: BOSENTAN
     Indication: Product used for unknown indication
  9. LANSOPRAZOLE [Concomitant]
     Active Substance: LANSOPRAZOLE
     Indication: Product used for unknown indication
  10. ZINC [Concomitant]
     Active Substance: ZINC
     Indication: Mineral supplementation
  11. CHOLECALCIFEROL [Concomitant]
     Active Substance: CHOLECALCIFEROL
  12. MELATONIN [Concomitant]
     Active Substance: MELATONIN
     Indication: Product used for unknown indication
  13. LORAZEPAM [Concomitant]
     Active Substance: LORAZEPAM
  14. DEXMEDETOMIDINE [Concomitant]
     Active Substance: DEXMEDETOMIDINE
     Dosage: CONTINUOUS
  15. SPIRONOLACTONE [Concomitant]
     Active Substance: SPIRONOLACTONE
  16. FUROSEMIDE [Concomitant]
     Active Substance: FUROSEMIDE
  17. CHLOROTHIAZIDE [Concomitant]
     Active Substance: CHLOROTHIAZIDE
  18. IRON [Concomitant]
     Active Substance: IRON
     Indication: Mineral supplementation

REACTIONS (8)
  - Cardiac arrest [Fatal]
  - Drug interaction [Recovering/Resolving]
  - Multiple organ dysfunction syndrome [Recovering/Resolving]
  - Serotonin syndrome [Recovering/Resolving]
  - Liver injury [Recovering/Resolving]
  - Drug clearance decreased [Recovering/Resolving]
  - Shock [Recovering/Resolving]
  - Brain injury [Not Recovered/Not Resolved]
